FAERS Safety Report 18745706 (Version 1)
Quarter: 2021Q1

REPORT INFORMATION
  Report Type: Spontaneous
  Country: US (occurrence: US)
  Receive Date: 20210114
  Receipt Date: 20210114
  Transmission Date: 20210419
  Serious: No
  Sender: FDA-Public Use
  Company Number: None

PATIENT
  Age: 47 Year
  Sex: Female
  Weight: 67.5 kg

DRUGS (15)
  1. IMITREX [Concomitant]
     Active Substance: SUMATRIPTAN SUCCINATE
  2. MVI [Concomitant]
     Active Substance: VITAMINS
  3. VITAMIN C [Concomitant]
     Active Substance: ASCORBIC ACID
  4. EXCEDRIN [Concomitant]
     Active Substance: ACETAMINOPHEN\ASPIRIN\CAFFEINE
  5. IBUPROFEN. [Concomitant]
     Active Substance: IBUPROFEN
  6. CALCIUM WITH D [Concomitant]
     Active Substance: CALCIUM\VITAMIN D
  7. PSEUDOEPHEDRINE. [Concomitant]
     Active Substance: PSEUDOEPHEDRINE HYDROCHLORIDE
  8. VITAMIN D3 [Concomitant]
     Active Substance: CHOLECALCIFEROL
  9. FIORICET [Concomitant]
     Active Substance: ACETAMINOPHEN\BUTALBITAL\CAFFEINE
  10. NORCO [Concomitant]
     Active Substance: ACETAMINOPHEN\HYDROCODONE BITARTRATE
  11. NORTRIPTYLINE 25MG [Suspect]
     Active Substance: NORTRIPTYLINE
     Indication: MIGRAINE PROPHYLAXIS
     Route: 048
     Dates: start: 20181215
  12. LEVBID [Concomitant]
     Active Substance: HYOSCYAMINE SULFATE
  13. IRON [Concomitant]
     Active Substance: IRON
  14. CYMBALTA [Concomitant]
     Active Substance: DULOXETINE HYDROCHLORIDE
  15. VITAMINS [Concomitant]
     Active Substance: VITAMINS

REACTIONS (3)
  - Dysgeusia [None]
  - Oesophagitis chemical [None]
  - Gastrooesophageal reflux disease [None]

NARRATIVE: CASE EVENT DATE: 20210114
